FAERS Safety Report 7930513-7 (Version None)
Quarter: 2011Q4

REPORT INFORMATION
  Report Type: 
  Country: None (occurrence: None)
  Receive Date: 20111117
  Receipt Date: 20111102
  Transmission Date: 20120403
  Serious: Yes (Life-Threatening, Hospitalization, Other)
  Sender: FDA-Public Use
  Company Number: 2011MA015990

PATIENT
  Age: 26 Year
  Sex: Female

DRUGS (3)
  1. LEVOMEPROMAZINE (LEVOMEPROMAZINE) [Suspect]
     Indication: OVERDOSE
     Dosage: 1X
  2. ALCOHOL [Suspect]
     Indication: OVERDOSE
     Dosage: 1X
  3. DIAZEPAM [Suspect]
     Indication: OVERDOSE
     Dosage: 1X

REACTIONS (9)
  - LOSS OF CONSCIOUSNESS [None]
  - BLOOD PRESSURE DECREASED [None]
  - NERVE INJURY [None]
  - MUSCLE NECROSIS [None]
  - FALL [None]
  - BLOOD CREATINE PHOSPHOKINASE INCREASED [None]
  - MULTIPLE DRUG OVERDOSE [None]
  - DEEP VEIN THROMBOSIS [None]
  - COMPARTMENT SYNDROME [None]
